FAERS Safety Report 22139440 (Version 1)
Quarter: 2023Q1

REPORT INFORMATION
  Report Type: Spontaneous
  Country: GB (occurrence: GB)
  Receive Date: 20230327
  Receipt Date: 20230327
  Transmission Date: 20230417
  Serious: Yes (Hospitalization, Other)
  Sender: FDA-Public Use
  Company Number: None

PATIENT

DRUGS (30)
  1. PREDNISOLONE [Suspect]
     Active Substance: PREDNISOLONE
     Dosage: UNK
  2. ASPIRIN [Concomitant]
     Active Substance: ASPIRIN
     Dosage: 75 MG, QD
     Dates: start: 20221201
  3. ATORVASTATIN [Concomitant]
     Active Substance: ATORVASTATIN
     Dosage: 20 MG, QD (AT NIGHT)
     Dates: start: 20221201
  4. AZITHROMYCIN [Concomitant]
     Active Substance: AZITHROMYCIN
     Dosage: 500 MG, TID (MONDAY, WEDNESDAY, FRIDAY)
     Dates: start: 20221201
  5. BENZYDAMINE [Concomitant]
     Active Substance: BENZYDAMINE
     Dosage: 15 ML, QID(RINSE)
     Route: 048
     Dates: start: 20221104
  6. CARBOCYSTEINE [Concomitant]
     Active Substance: CARBOCYSTEINE
     Dosage: 750 MG, TID
     Route: 048
     Dates: start: 20221201
  7. CHLORHEXIDINE [Concomitant]
     Active Substance: CHLORHEXIDINE
     Indication: Dental disorder prophylaxis
     Dosage: 10 ML, PRN
     Dates: start: 20221031
  8. CLINDAMYCIN [Concomitant]
     Active Substance: CLINDAMYCIN
     Dosage: 300 MG, QID
     Dates: start: 20221205
  9. CLONIDINE [Concomitant]
     Active Substance: CLONIDINE
     Dosage: 75 UG, BID
     Dates: start: 20221201
  10. CODEINE [Concomitant]
     Active Substance: CODEINE
     Indication: Pain
     Dosage: 30 MG, PRN
     Dates: start: 20221104
  11. CYCLIZINE [Concomitant]
     Active Substance: CYCLIZINE
     Dosage: 50 MG, PRN(UP TO THREE TIMES A DAY)
     Dates: start: 20221104
  12. DOXYCYCLINE [Concomitant]
     Active Substance: DOXYCYCLINE
     Dosage: 100 MG, BID (EVERY MORNING AND AT TEATIME)
     Dates: start: 20221031
  13. ESOMEPRAZOLE [Concomitant]
     Active Substance: ESOMEPRAZOLE
     Dosage: UNK
  14. ETORICOXIB [Concomitant]
     Active Substance: ETORICOXIB
     Dosage: 60 MG, QD
     Dates: start: 20221201
  15. FLUOXETINE [Concomitant]
     Active Substance: FLUOXETINE HYDROCHLORIDE
     Dosage: 20 MG, BID
     Dates: start: 20221201
  16. HYPROMELLOSES [Concomitant]
     Active Substance: HYPROMELLOSES
     Dosage: 10 ML, PRN
     Dates: start: 20221201
  17. KETOPROFEN [Concomitant]
     Active Substance: KETOPROFEN
     Dosage: UNK
  18. MORPHINE [Concomitant]
     Active Substance: MORPHINE
     Dosage: UNK
  19. NAPROXEN [Concomitant]
     Active Substance: NAPROXEN
     Dosage: 40 MG, QD
  20. OMEPRAZOLE [Concomitant]
     Active Substance: OMEPRAZOLE
     Dosage: 40 MG, QD
     Route: 048
     Dates: start: 20221201
  21. PREGABALIN [Concomitant]
     Active Substance: PREGABALIN
     Dosage: 200 MG, BID
     Route: 048
     Dates: start: 20221201
  22. SECUKINUMAB [Concomitant]
     Active Substance: SECUKINUMAB
     Dosage: 150 MG, MONTHLY
     Dates: start: 20220822
  23. TRELEGY ELLIPTA [Concomitant]
     Active Substance: FLUTICASONE FUROATE\UMECLIDINIUM BROMIDE\VILANTEROL TRIFENATATE
     Dosage: 1 DOSAGE FORM, QD(92MICROGRAMS/DOSE / 55MICROGRAMS/DOSE / 22MICROGRAMS/DOSE)
     Route: 055
     Dates: start: 20221201
  24. MORPHINE [Concomitant]
     Active Substance: MORPHINE
     Dosage: 10 MG, PRN
     Dates: start: 20221201
  25. MORPHINE SULFATE [Concomitant]
     Active Substance: MORPHINE SULFATE
     Dosage: 30 MG(30 MG IN 12 DAY)
     Dates: start: 20221201
  26. MORPHINE SULFATE [Concomitant]
     Active Substance: MORPHINE SULFATE
     Dosage: 10 MG, BID
     Dates: start: 20221201
  27. CALCIUM CARBONATE\CHOLECALCIFEROL [Concomitant]
     Active Substance: CALCIUM CARBONATE\CHOLECALCIFEROL
     Dosage: 1 DOSAGE FORM, QD(MORNING)
     Dates: start: 20221201
  28. ALBUTEROL [Concomitant]
     Active Substance: ALBUTEROL
     Dosage: UNK(ONE OR TWO PUFFS TO BE INHALED UP TO FOUR TIMES A DAY)
     Route: 055
     Dates: start: 20221201
  29. CREON [Concomitant]
     Active Substance: PANCRELIPASE AMYLASE\PANCRELIPASE LIPASE\PANCRELIPASE PROTEASE
     Dosage: UNK(ONE OR TWO TO BE TAKEN EACH MEAL, TAKES 3 WITH MEALS AND 1 WITH SNACKS)
     Dates: start: 20221201
  30. NITROGLYCERIN [Concomitant]
     Active Substance: NITROGLYCERIN
     Indication: Chest pain
     Dosage: UNK, PRN(ONE OR TWO PUFFS AS REQUIRED, REPEAT IF NEEDED AFTER A FEW MINUTES)
     Route: 060
     Dates: start: 20221104

REACTIONS (1)
  - Pancreatitis [Recovered/Resolved]
